FAERS Safety Report 17323872 (Version 1)
Quarter: 2020Q1

REPORT INFORMATION
  Report Type: Spontaneous
  Country: FR (occurrence: FR)
  Receive Date: 20200127
  Receipt Date: 20200127
  Transmission Date: 20200409
  Serious: Yes (Death)
  Sender: FDA-Public Use
  Company Number: FR-ZYDUS-021658

PATIENT
  Age: 69 Year
  Sex: Male

DRUGS (5)
  1. BISOPROLOL [Suspect]
     Active Substance: BISOPROLOL
     Indication: HYPERTENSION
     Route: 048
     Dates: end: 20180102
  2. VOGALENE [Concomitant]
     Active Substance: METOPIMAZINE
  3. MOLSIDOMINE [Suspect]
     Active Substance: MOLSIDOMINE
     Indication: MYOCARDIAL ISCHAEMIA
     Route: 048
     Dates: end: 20180102
  4. METFORMIN [Suspect]
     Active Substance: METFORMIN HYDROCHLORIDE
     Indication: DIABETES MELLITUS
     Route: 048
     Dates: end: 20180102
  5. KARDEGIC [Suspect]
     Active Substance: ASPIRIN DL-LYSINE
     Indication: MYOCARDIAL ISCHAEMIA
     Route: 048
     Dates: end: 20180102

REACTIONS (3)
  - Acute kidney injury [Fatal]
  - Cardiogenic shock [Fatal]
  - Lactic acidosis [Fatal]

NARRATIVE: CASE EVENT DATE: 201801
